FAERS Safety Report 14264340 (Version 1)
Quarter: 2017Q4

REPORT INFORMATION
  Report Type: Report from Study
  Country: US (occurrence: US)
  Receive Date: 20171208
  Receipt Date: 20171208
  Transmission Date: 20180321
  Serious: Yes (Other)
  Sender: FDA-Public Use
  Company Number: US-JAZZ-2017-US-012798

PATIENT
  Age: 58 Year
  Sex: Female

DRUGS (3)
  1. XYREM [Suspect]
     Active Substance: SODIUM OXYBATE
     Dosage: 3 G, BID
     Route: 048
     Dates: start: 201709, end: 2017
  2. XYREM [Suspect]
     Active Substance: SODIUM OXYBATE
     Dosage: 2.25 G, BID
     Route: 048
     Dates: start: 2017
  3. XYREM [Suspect]
     Active Substance: SODIUM OXYBATE
     Indication: NARCOLEPSY
     Dosage: 2.25 G, BID
     Route: 048
     Dates: start: 20170928, end: 201709

REACTIONS (13)
  - Abdominal pain upper [Unknown]
  - Retching [Unknown]
  - Mental disorder [Unknown]
  - Agitation [Unknown]
  - Disorientation [Unknown]
  - Vomiting [Recovered/Resolved]
  - Fall [Recovered/Resolved]
  - Nausea [Not Recovered/Not Resolved]
  - Foot fracture [Unknown]
  - Blood pressure increased [Unknown]
  - Rectal discharge [Unknown]
  - Somnambulism [Unknown]
  - Contusion [Unknown]

NARRATIVE: CASE EVENT DATE: 2017
